FAERS Safety Report 11933073 (Version 3)
Quarter: 2018Q1

REPORT INFORMATION
  Report Type: Report from Study
  Country: US (occurrence: US)
  Receive Date: 20160121
  Receipt Date: 20180202
  Transmission Date: 20180508
  Serious: Yes (Other)
  Sender: FDA-Public Use
  Company Number: US-AMGEN-USASL2016005847

PATIENT
  Age: 54 Year
  Sex: Male

DRUGS (1)
  1. ENBREL [Suspect]
     Active Substance: ETANERCEPT
     Indication: PSORIATIC ARTHROPATHY
     Dosage: UNK UNK, QWK
     Route: 065
     Dates: start: 201510

REACTIONS (22)
  - Arthralgia [Not Recovered/Not Resolved]
  - Neuropathy peripheral [Unknown]
  - Ligament rupture [Unknown]
  - Tendon rupture [Unknown]
  - Burning sensation [Not Recovered/Not Resolved]
  - Joint arthroplasty [Unknown]
  - Injection site pain [Unknown]
  - Osteoarthritis [Unknown]
  - Neuralgia [Unknown]
  - Nerve compression [Unknown]
  - Carpal tunnel syndrome [Unknown]
  - Meniscus injury [Unknown]
  - Pain in extremity [Not Recovered/Not Resolved]
  - Trigger finger [Unknown]
  - Insomnia [Unknown]
  - Intervertebral disc protrusion [Unknown]
  - Synovial cyst removal [Unknown]
  - Limb operation [Unknown]
  - Ligament operation [Unknown]
  - Depression [Not Recovered/Not Resolved]
  - Psoriasis [Unknown]
  - Back pain [Unknown]

NARRATIVE: CASE EVENT DATE: 2015
